FAERS Safety Report 19730011 (Version 3)
Quarter: 2022Q1

REPORT INFORMATION
  Report Type: Report from Study
  Country: US (occurrence: US)
  Receive Date: 20210821
  Receipt Date: 20220131
  Transmission Date: 20220423
  Serious: Yes (Other)
  Sender: FDA-Public Use
  Company Number: US-NOVARTISTESTPH-NVSC2021US185381

PATIENT
  Sex: Male

DRUGS (2)
  1. ENTRESTO [Suspect]
     Active Substance: SACUBITRIL\VALSARTAN
     Indication: Cardiac failure congestive
     Dosage: UNK UNK, BID
     Route: 048
     Dates: start: 20210722
  2. ENTRESTO [Suspect]
     Active Substance: SACUBITRIL\VALSARTAN
     Dosage: UNK UNK, BID(1 TABLET IN THE MORNING AND 2 IN THE AFTERNOON)
     Route: 048
     Dates: start: 20211026

REACTIONS (6)
  - Cardiac dysfunction [Unknown]
  - Respiratory rate decreased [Unknown]
  - Dyspepsia [Unknown]
  - Anal fistula [Unknown]
  - Incorrect dose administered [Unknown]
  - Stress [Recovered/Resolved with Sequelae]
